FAERS Safety Report 5631859-8 (Version None)
Quarter: 2008Q1

REPORT INFORMATION
  Report Type: 
  Country: None (occurrence: None)
  Receive Date: 20080220
  Receipt Date: 20080205
  Transmission Date: 20080703
  Serious: Yes (Hospitalization, Other)
  Sender: FDA-Public Use
  Company Number: US-BAYER-US-2007-028457

PATIENT
  Age: 79 Year
  Sex: Male

DRUGS (9)
  1. CAMPATH [Suspect]
     Indication: CHRONIC LYMPHOCYTIC LEUKAEMIA
     Dosage: UNIT DOSE: 30 MG
     Route: 058
     Dates: start: 20061030, end: 20061124
  2. RITUXAN [Suspect]
     Indication: CHRONIC LYMPHOCYTIC LEUKAEMIA
     Route: 042
     Dates: end: 20060724
  3. FLUDARA [Suspect]
     Indication: CHRONIC LYMPHOCYTIC LEUKAEMIA
     Route: 042
     Dates: end: 20060728
  4. ALLOPURINOL [Concomitant]
     Route: 048
  5. DIPHENHYDRAMINE HCL [Concomitant]
     Indication: PREMEDICATION
  6. ACETAMINOPHEN [Concomitant]
     Indication: PREMEDICATION
     Route: 048
  7. CO-TRIMOXAZOLE [Concomitant]
     Route: 048
  8. DAPSONE [Concomitant]
     Dates: end: 20070601
  9. VALTREX [Concomitant]
     Dates: end: 20070601

REACTIONS (8)
  - ABDOMINAL PAIN [None]
  - B-CELL LYMPHOMA [None]
  - CHRONIC LYMPHOCYTIC LEUKAEMIA TRANSFORMATION [None]
  - CYTOMEGALOVIRUS INFECTION [None]
  - EPSTEIN-BARR VIRUS INFECTION [None]
  - FEBRILE NEUTROPENIA [None]
  - HYPONATRAEMIA [None]
  - MENTAL STATUS CHANGES [None]
